FAERS Safety Report 6604089-0 (Version None)
Quarter: 2010Q1

REPORT INFORMATION
  Report Type: 
  Country: None (occurrence: None)
  Receive Date: 20100226
  Receipt Date: 20090507
  Transmission Date: 20100710
  Serious: No
  Sender: FDA-Public Use
  Company Number: A0784384A

PATIENT
  Sex: Male

DRUGS (1)
  1. LAMICTAL CD [Suspect]
     Indication: BIPOLAR DISORDER
     Dosage: 37.5MG PER DAY
     Route: 048

REACTIONS (1)
  - BLOOD GLUCOSE INCREASED [None]
